FAERS Safety Report 9542809 (Version 2)
Quarter: 2013Q4

REPORT INFORMATION
  Report Type: Spontaneous
  Country: US (occurrence: US)
  Receive Date: 20130923
  Receipt Date: 20131107
  Transmission Date: 20140711
  Serious: No
  Sender: FDA-Public Use
  Company Number: US-PFIZER INC-2013272703

PATIENT
  Age: 37 Year
  Sex: Female
  Weight: 90.7 kg

DRUGS (2)
  1. EFFEXOR [Suspect]
     Indication: POST-TRAUMATIC STRESS DISORDER
     Dosage: 75 MG, 2X/DAY
     Route: 048
     Dates: start: 20130601, end: 20130709
  2. EFFEXOR [Suspect]
     Indication: AFFECTIVE DISORDER

REACTIONS (3)
  - Pain in extremity [Recovered/Resolved]
  - Tendonitis [Unknown]
  - Pain in extremity [Unknown]
